FAERS Safety Report 14141580 (Version 7)
Quarter: 2017Q4

REPORT INFORMATION
  Report Type: Spontaneous
  Country: FR (occurrence: FR)
  Receive Date: 20171030
  Receipt Date: 20171214
  Transmission Date: 20180321
  Serious: Yes (Other)
  Sender: FDA-Public Use
  Company Number: FR-MERCK KGAA-2032699

PATIENT
  Age: 82 Year
  Sex: Female

DRUGS (4)
  1. NOVOTHYROX [Suspect]
     Active Substance: LEVOTHYROXINE SODIUM
  2. NOVOTHYROX [Suspect]
     Active Substance: LEVOTHYROXINE SODIUM
     Indication: POST PROCEDURAL HYPOTHYROIDISM
  3. INEXIUM [Concomitant]
     Active Substance: ESOMEPRAZOLE
  4. CRATAEGUS EXTRACT [Concomitant]
     Active Substance: HAWTHORN LEAF WITH FLOWER

REACTIONS (20)
  - Dizziness [None]
  - Palpitations [Not Recovered/Not Resolved]
  - Hyperhidrosis [Not Recovered/Not Resolved]
  - Insomnia [Not Recovered/Not Resolved]
  - Hot flush [None]
  - Weight increased [None]
  - Tachycardia [None]
  - Muscle spasms [None]
  - Impaired driving ability [None]
  - Tremor [None]
  - Pain [Not Recovered/Not Resolved]
  - Alopecia [None]
  - Vertigo [Not Recovered/Not Resolved]
  - Malaise [None]
  - Joint swelling [None]
  - Gait disturbance [None]
  - Feeling abnormal [None]
  - Loss of personal independence in daily activities [None]
  - Fall [Not Recovered/Not Resolved]
  - Anxiety [None]

NARRATIVE: CASE EVENT DATE: 2017
